FAERS Safety Report 17723929 (Version 1)
Quarter: 2020Q2

REPORT INFORMATION
  Report Type: Report from Study
  Country: IN (occurrence: IN)
  Receive Date: 20200429
  Receipt Date: 20200429
  Transmission Date: 20200714
  Serious: Yes (Other)
  Sender: FDA-Public Use
  Company Number: NVSC2020IN043049

PATIENT
  Age: 55 Year
  Sex: Female
  Weight: 65 kg

DRUGS (4)
  1. GALVUS MET [Suspect]
     Active Substance: METFORMIN HYDROCHLORIDE\VILDAGLIPTIN
     Indication: DIABETES MELLITUS
     Dosage: 50/1000, SINCE 7 YEARS, 1-0-1, POST MEAL
     Route: 048
  2. FORXIGA [Concomitant]
     Active Substance: DAPAGLIFLOZIN
     Indication: DIABETES MELLITUS
     Dosage: UNK, QD, 1-0-0
     Route: 048
  3. PROLOMET [Concomitant]
     Indication: HYPERTENSION
     Dosage: 45 OT, BID, 1-0-1, POST MEAL
     Route: 048
  4. TELMA-H [Concomitant]
     Indication: HYPERTENSION
     Dosage: 40 OT, QD, 1-0-0, POST MEAL
     Route: 048

REACTIONS (9)
  - Hypoglycaemia [Not Recovered/Not Resolved]
  - Blood pressure fluctuation [Unknown]
  - Restlessness [Not Recovered/Not Resolved]
  - Circulatory collapse [Unknown]
  - Intentional product use issue [Unknown]
  - Hepatic steatosis [Recovered/Resolved]
  - Arthritis [Unknown]
  - Pain in extremity [Unknown]
  - Weight increased [Unknown]
